FAERS Safety Report 9802525 (Version 3)
Quarter: 2014Q1

REPORT INFORMATION
  Report Type: Report from Study
  Country: US (occurrence: US)
  Receive Date: 20140108
  Receipt Date: 20140205
  Transmission Date: 20141002
  Serious: Yes (Hospitalization)
  Sender: FDA-Public Use
  Company Number: US-ROCHE-1329343

PATIENT
  Age: 68 Year
  Sex: Female
  Weight: 81.72 kg

DRUGS (16)
  1. ACTEMRA [Suspect]
     Indication: RHEUMATOID ARTHRITIS
     Route: 042
     Dates: start: 201206, end: 201401
  2. ACTEMRA [Suspect]
     Dosage: LAST DOSE WAS ON 24/DEC/2013.
     Route: 050
     Dates: start: 20130610, end: 201401
  3. CLONAZEPAM [Suspect]
     Indication: PRODUCT USED FOR UNKNOWN INDICATION
     Route: 048
  4. LEXAPRO [Concomitant]
     Route: 048
  5. GLYBURIDE [Concomitant]
     Route: 048
  6. LIPITOR [Concomitant]
     Route: 048
  7. LOVAZA [Concomitant]
     Route: 048
  8. AVAPRO [Concomitant]
     Indication: HYPERTENSION
     Route: 048
  9. LASIX [Concomitant]
     Route: 048
  10. MIRTAZAPINE [Concomitant]
     Route: 065
  11. LUNESTA [Concomitant]
     Route: 065
  12. ATENOLOL [Concomitant]
     Indication: HYPERTENSION
     Route: 065
  13. NORVASC [Concomitant]
     Indication: HYPERTENSION
     Route: 065
  14. COUMADIN [Concomitant]
     Dosage: 5MG 5DAYS A WEEK; 7.5MG THE OTHER 2 DAYS
     Route: 048
     Dates: start: 201401
  15. AMLODINE [Concomitant]
     Route: 065
  16. LIDODERM [Concomitant]
     Route: 065

REACTIONS (5)
  - Deep vein thrombosis [Recovering/Resolving]
  - Pulmonary embolism [Recovering/Resolving]
  - Pulmonary thrombosis [Unknown]
  - Thrombosis [Unknown]
  - Weight increased [Unknown]
